FAERS Safety Report 9117913 (Version 3)
Quarter: 2013Q2

REPORT INFORMATION
  Report Type: Report from Study
  Country: DE (occurrence: DE)
  Receive Date: 20130208
  Receipt Date: 20130630
  Transmission Date: 20140414
  Serious: Yes (Hospitalization)
  Sender: FDA-Public Use
  Company Number: DE-ABBOTT-13P-062-1036002-00

PATIENT
  Age: 21 Year
  Sex: Female
  Weight: 83 kg

DRUGS (4)
  1. HUMIRA [Suspect]
     Indication: CROHN^S DISEASE
     Dates: start: 20121130, end: 20130111
  2. HUMIRA [Suspect]
     Dates: start: 20130215
  3. SALOFALK [Concomitant]
     Indication: CROHN^S DISEASE
     Dosage: UNKNOWN
  4. CROTISONE [Concomitant]
     Indication: CROHN^S DISEASE
     Dosage: UNKNOWN

REACTIONS (3)
  - Gastrointestinal inflammation [Not Recovered/Not Resolved]
  - Abdominal pain [Not Recovered/Not Resolved]
  - Colitis [Not Recovered/Not Resolved]
